FAERS Safety Report 7042237-1 (Version None)
Quarter: 2010Q4

REPORT INFORMATION
  Report Type: 
  Country: None (occurrence: None)
  Receive Date: 20101013
  Receipt Date: 20101004
  Transmission Date: 20110411
  Serious: Yes (Hospitalization)
  Sender: FDA-Public Use
  Company Number: ZA-ABBOTT-10P-143-0675676-00

PATIENT

DRUGS (2)
  1. HUMIRA [Suspect]
     Indication: RHEUMATOID ARTHRITIS
     Route: 058
     Dates: start: 20100901, end: 20100901
  2. HUMIRA [Suspect]
     Dates: start: 20100915, end: 20100915

REACTIONS (2)
  - ARTHRITIS [None]
  - PYREXIA [None]
